FAERS Safety Report 16745948 (Version 1)
Quarter: 2019Q4

REPORT INFORMATION
  Report Type: Spontaneous
  Country: US (occurrence: US)
  Receive Date: 20190827
  Receipt Date: 20190827
  Transmission Date: 20200122
  Serious: No
  Sender: FDA-Public Use
  Company Number: None

PATIENT
  Age: 66 Year
  Sex: Female

DRUGS (1)
  1. SUMATRIPTAN. [Suspect]
     Active Substance: SUMATRIPTAN
     Indication: MIGRAINE
     Dosage: ?          OTHER FREQUENCY:1 TAB EVERY 2 HOUR;?
     Route: 048
     Dates: start: 20190805, end: 20190827

REACTIONS (2)
  - Therapeutic product effect incomplete [None]
  - Product use issue [None]

NARRATIVE: CASE EVENT DATE: 20190805
